FAERS Safety Report 17756135 (Version 1)
Quarter: 2020Q2

REPORT INFORMATION
  Report Type: Spontaneous
  Country: US (occurrence: US)
  Receive Date: 20200507
  Receipt Date: 20200507
  Transmission Date: 20200714
  Serious: Yes (Other)
  Sender: FDA-Public Use
  Company Number: NVSC2020US122265

PATIENT
  Age: 79 Year
  Sex: Female

DRUGS (6)
  1. ELIQUIS [Concomitant]
     Active Substance: APIXABAN
     Indication: PRODUCT USED FOR UNKNOWN INDICATION
     Route: 065
  2. AZOPT [Suspect]
     Active Substance: BRINZOLAMIDE
     Indication: GLAUCOMA
     Dosage: UNK
     Route: 047
     Dates: start: 20200220, end: 202003
  3. LISINOPRIL. [Concomitant]
     Active Substance: LISINOPRIL
     Indication: PRODUCT USED FOR UNKNOWN INDICATION
     Route: 065
  4. CARVEDILOL. [Concomitant]
     Active Substance: CARVEDILOL
     Indication: PRODUCT USED FOR UNKNOWN INDICATION
     Route: 065
  5. TIMOLOL. [Suspect]
     Active Substance: TIMOLOL
     Indication: GLAUCOMA
     Dosage: 1 GTT, QID (RIGHT EYE)
     Route: 047
     Dates: start: 20200108, end: 202002
  6. LUMIGAN [Suspect]
     Active Substance: BIMATOPROST
     Indication: GLAUCOMA
     Dosage: 2 GTT, QHS (EYE DROPS SOLUTION 0.1 MG/ML IN BOTH EYES)
     Route: 047

REACTIONS (11)
  - Vitreous haemorrhage [Unknown]
  - Fall [Recovered/Resolved]
  - Vomiting [Recovered/Resolved]
  - Abdominal discomfort [Recovered/Resolved]
  - Glaucoma [Not Recovered/Not Resolved]
  - Dizziness [Recovered/Resolved]
  - Palpitations [Recovered/Resolved]
  - Vision blurred [Recovered/Resolved]
  - Dyspnoea [Recovering/Resolving]
  - Vertigo [Recovering/Resolving]
  - Bowel movement irregularity [Recovered/Resolved]

NARRATIVE: CASE EVENT DATE: 202001
